FAERS Safety Report 15811810 (Version 5)
Quarter: 2019Q1

REPORT INFORMATION
  Report Type: Report from Study
  Country: US (occurrence: US)
  Receive Date: 20190111
  Receipt Date: 20190312
  Transmission Date: 20190417
  Serious: Yes (Death, Hospitalization, Other)
  Sender: FDA-Public Use
  Company Number: US-GILEAD-2019-0383966

PATIENT
  Age: 76 Year
  Sex: Female

DRUGS (2)
  1. VELETRI [Concomitant]
     Active Substance: EPOPROSTENOL
  2. AMBRISENTAN [Suspect]
     Active Substance: AMBRISENTAN
     Indication: PRODUCT USED FOR UNKNOWN INDICATION
     Dosage: 10 MG, QD
     Route: 065
     Dates: start: 20180815

REACTIONS (7)
  - Death [Fatal]
  - Dyspnoea [Unknown]
  - Pulmonary oedema [Unknown]
  - Loss of consciousness [Unknown]
  - Tachycardia [Unknown]
  - Subdural haematoma [Unknown]
  - Vomiting [Not Recovered/Not Resolved]
